FAERS Safety Report 9884511 (Version 1)
Quarter: 2014Q1

REPORT INFORMATION
  Report Type: Spontaneous
  Country: US (occurrence: US)
  Receive Date: 20140210
  Receipt Date: 20140210
  Transmission Date: 20141002
  Serious: No
  Sender: FDA-Public Use
  Company Number: US-ALLERGAN-1319507US

PATIENT
  Age: 79 Year
  Sex: Female

DRUGS (9)
  1. BOTOX [Suspect]
     Indication: HEADACHE
     Dosage: 200 UNITS, SINGLE
     Route: 030
     Dates: start: 20131111, end: 20131111
  2. THYROID MEDICINE NOS [Concomitant]
     Indication: HYPOTHYROIDISM
     Dosage: UNK
  3. ASA [Concomitant]
     Indication: CARDIOVASCULAR EVENT PROPHYLAXIS
     Dosage: 81 MG, QD
     Route: 048
  4. MEDICATIONS FOR SHINGLES NOS [Concomitant]
     Indication: HERPES ZOSTER
  5. MEDICINES FOR ATRIAL FIBRILLATION NOS [Concomitant]
     Indication: ATRIAL FIBRILLATION
  6. TYLENOL                            /00020001/ [Concomitant]
     Indication: HERPES ZOSTER
  7. CODEINE [Concomitant]
     Indication: HERPES ZOSTER
  8. CYMBALTA [Concomitant]
     Indication: PAIN
     Dosage: 20 MG, UNK
  9. OXYCODONE [Concomitant]
     Indication: PAIN

REACTIONS (10)
  - Sensory disturbance [Unknown]
  - Arthralgia [Recovered/Resolved]
  - Off label use [Unknown]
  - Epistaxis [Not Recovered/Not Resolved]
  - Arthralgia [Not Recovered/Not Resolved]
  - Headache [Not Recovered/Not Resolved]
  - Muscular weakness [Not Recovered/Not Resolved]
  - Myalgia [Not Recovered/Not Resolved]
  - Myalgia [Recovered/Resolved]
  - Pain in jaw [Not Recovered/Not Resolved]
